FAERS Safety Report 6393060-2 (Version None)
Quarter: 2009Q4

REPORT INFORMATION
  Report Type: 
  Country: None (occurrence: None)
  Receive Date: 20091008
  Receipt Date: 20071016
  Transmission Date: 20100525
  Serious: Yes (Other)
  Sender: FDA-Public Use
  Company Number: US-ASTRAZENECA-2007UW09251

PATIENT
  Age: 21614 Day
  Sex: Male
  Weight: 137.4 kg

DRUGS (28)
  1. SEROQUEL [Suspect]
     Indication: BIPOLAR DISORDER
     Route: 048
     Dates: start: 20020101, end: 20060701
  2. SEROQUEL [Suspect]
     Indication: SCHIZOPHRENIA
     Route: 048
     Dates: start: 20020101, end: 20060701
  3. SEROQUEL [Suspect]
     Dosage: 100 MG - 300 MG
     Route: 048
     Dates: start: 20030101, end: 20060701
  4. SEROQUEL [Suspect]
     Dosage: 100 MG - 300 MG
     Route: 048
     Dates: start: 20030101, end: 20060701
  5. ZYPREXA [Suspect]
     Dates: start: 19980812, end: 20020101
  6. RISPERDAL [Concomitant]
  7. HALDOL [Concomitant]
  8. NAVANE [Concomitant]
  9. SOLIAN [Concomitant]
  10. STELAZINE [Concomitant]
  11. THORAZINE [Concomitant]
  12. TRILAFON [Concomitant]
  13. DEPAKOTE [Concomitant]
  14. TEGRETOL [Concomitant]
  15. LITHIUM [Concomitant]
  16. GLUCOTROL XL [Concomitant]
     Dates: start: 20050404
  17. NIASPAN [Concomitant]
     Dates: start: 20050404
  18. LIPITOR [Concomitant]
     Dosage: 1 AT NIGHT
     Dates: start: 20031001
  19. SIMVASTATIN [Concomitant]
     Indication: BLOOD CHOLESTEROL
     Dosage: 20 - 40 MG
     Dates: start: 20030117
  20. ALLOPURINOL [Concomitant]
     Dates: start: 20030116
  21. DONEPEZIL HCL [Concomitant]
     Indication: MEMORY IMPAIRMENT
     Route: 048
     Dates: start: 20030116
  22. FUROSEMIDE [Concomitant]
     Indication: BLOOD PRESSURE
     Route: 048
     Dates: start: 20030116
  23. HYDRALAZINE HCL [Concomitant]
     Dates: start: 20031215
  24. LEVOTHYROXINE SODIUM [Concomitant]
     Dates: start: 20030101
  25. ISOSORBIDE DINITRATE [Concomitant]
     Route: 048
     Dates: start: 20030101
  26. AMIODARONE HCL [Concomitant]
     Dates: start: 20030101
  27. POTASSIUM CHLORIDE [Concomitant]
     Route: 048
     Dates: start: 20030101
  28. CARVEDILOL [Concomitant]
     Dates: start: 20030101

REACTIONS (4)
  - DIABETES MELLITUS [None]
  - PANCREATITIS [None]
  - POLYNEUROPATHY [None]
  - TARDIVE DYSKINESIA [None]
